FAERS Safety Report 9530964 (Version 1)
Quarter: 2013Q3

REPORT INFORMATION
  Report Type: Spontaneous
  Country: US (occurrence: US)
  Receive Date: 20130918
  Receipt Date: 20130918
  Transmission Date: 20140515
  Serious: Yes (Hospitalization)
  Sender: FDA-Public Use
  Company Number: US-ASTRAZENECA-2013SE68702

PATIENT
  Age: 57 Year
  Sex: Male

DRUGS (3)
  1. BRILINTA [Suspect]
     Indication: ACUTE CORONARY SYNDROME
     Route: 048
  2. INTEGRILIN [Concomitant]
  3. ASA [Concomitant]

REACTIONS (3)
  - Chest pain [Recovering/Resolving]
  - Coronary artery stenosis [Unknown]
  - Retroperitoneal haematoma [Unknown]
